FAERS Safety Report 6035174-2 (Version None)
Quarter: 2009Q1

REPORT INFORMATION
  Report Type: 
  Country: None (occurrence: None)
  Receive Date: 20090109
  Receipt Date: 20081226
  Transmission Date: 20090719
  Serious: Yes (Disabling)
  Sender: FDA-Public Use
  Company Number: URSO-2008-172

PATIENT
  Age: 54 Year
  Sex: Female

DRUGS (18)
  1. URSO 250 [Suspect]
     Indication: ASCITES
     Dosage: 600 MG/DAY ORAL
     Route: 048
     Dates: start: 20061228
  2. URSO 250 [Suspect]
     Indication: HEPATIC CIRRHOSIS
     Dosage: 600 MG/DAY ORAL
     Route: 048
     Dates: start: 20061228
  3. MEDWAY (HUMAN SERUM ALBUMIN - GENETICAL RECOMBINATION) [Suspect]
     Indication: ASCITES
     Dosage: 50 ML/DAY
     Dates: start: 20081210, end: 20081210
  4. MEDWAY (HUMAN SERUM ALBUMIN - GENETICAL RECOMBINATION) [Suspect]
     Indication: HEPATIC CIRRHOSIS
     Dosage: 50 ML/DAY
     Dates: start: 20081210, end: 20081210
  5. CLONAZEPAM [Suspect]
     Dosage: 10 MG/DAY PO
     Route: 048
     Dates: start: 20070607
  6. DEPAS (ETIZOLAM) [Suspect]
     Dosage: PO
     Route: 048
  7. LANSOPRAZOLE [Concomitant]
  8. PREDNISOLONE [Concomitant]
  9. BENET (SODIUM RISENDRONATE HYDRATE) [Concomitant]
  10. ALOSENN (SENNA LEAF-SENNA POD) [Concomitant]
  11. NELBON (NITRAZEPAM) [Concomitant]
  12. MAGNESIUM OXIDE [Concomitant]
  13. PROMAC (POLAPREZINC) [Concomitant]
  14. LASIX [Concomitant]
  15. ALDACTONE [Concomitant]
  16. LIVACT (ISOLEUCINE-LEUCINE-VALINE) [Concomitant]
  17. SHAKUYAKU-KANZO-TO (SHAKUYAKU-KANZO-TO) [Concomitant]
  18. ETIZOLAM [Concomitant]

REACTIONS (1)
  - CEREBRAL INFARCTION [None]
